FAERS Safety Report 18065944 (Version 1)
Quarter: 2020Q3

REPORT INFORMATION
  Report Type: Spontaneous
  Country: SG (occurrence: SG)
  Receive Date: 20200724
  Receipt Date: 20200724
  Transmission Date: 20201103
  Serious: Yes (Life-Threatening, Hospitalization)
  Sender: FDA-Public Use
  Company Number: SG-MYLANLABS-2020M1067309

PATIENT
  Sex: Male

DRUGS (3)
  1. EPINEPHRINE. [Suspect]
     Active Substance: EPINEPHRINE
     Indication: BRADYCARDIA
     Dosage: 0.12 MICROGRAM/KILOGRAM, QMINUTE
     Route: 042
  2. ISOPRENALINE [Suspect]
     Active Substance: ISOPROTERENOL HYDROCHLORIDE
     Indication: BRADYCARDIA
     Dosage: 1 MICROGRAM/KILOGRAM, QMINUTE
     Route: 042
  3. SODIUM BICARBONATE. [Suspect]
     Active Substance: SODIUM BICARBONATE
     Indication: BRADYCARDIA
     Dosage: 1 MMOL/KG
     Route: 065

REACTIONS (1)
  - Drug ineffective [Unknown]
